FAERS Safety Report 6644581-6 (Version None)
Quarter: 2010Q1

REPORT INFORMATION
  Report Type: 
  Country: None (occurrence: None)
  Receive Date: 20100319
  Receipt Date: 20100319
  Transmission Date: 20100710
  Serious: No
  Sender: FDA-Public Use
  Company Number: None

PATIENT

DRUGS (2)
  1. PRAVASTATIN SODIUM [Suspect]
     Dates: start: 20071227
  2. ASPIRIN [Concomitant]

REACTIONS (10)
  - ARTHRALGIA [None]
  - DYSSTASIA [None]
  - FATIGUE [None]
  - GAIT DISTURBANCE [None]
  - HEMIPLEGIA [None]
  - INSOMNIA [None]
  - MUSCLE CONTRACTIONS INVOLUNTARY [None]
  - RHABDOMYOLYSIS [None]
  - SCIATICA [None]
  - URTICARIA [None]
